FAERS Safety Report 8644059 (Version 2)
Quarter: 2012Q4

REPORT INFORMATION
  Report Type: 
  Country: JP (occurrence: JP)
  Receive Date: 20120629
  Receipt Date: 20121009
  Transmission Date: 20130627
  Serious: No
  Sender: FDA-Public Use
  Company Number: JP-JNJFOC-20120608535

PATIENT
  Age: 85 Year
  Sex: Female

DRUGS (5)
  1. ITRIZOLE [Suspect]
     Indication: ANTIFUNGAL PROPHYLAXIS
     Route: 048
     Dates: start: 20120525, end: 20120606
  2. MYCOSYST [Suspect]
     Indication: PRODUCT USED FOR UNKNOWN INDICATION
     Route: 065
     Dates: start: 20120519, end: 20120606
  3. BAKTAR [Suspect]
     Indication: PRODUCT USED FOR UNKNOWN INDICATION
     Route: 048
     Dates: start: 20120519, end: 20120606
  4. EVISTA [Concomitant]
     Route: 048
     Dates: start: 20120531, end: 20120606
  5. VALTREX [Concomitant]
     Route: 048
     Dates: start: 20120519, end: 20120606

REACTIONS (1)
  - Drug eruption [Recovered/Resolved]
